FAERS Safety Report 26123887 (Version 1)
Quarter: 2025Q4

REPORT INFORMATION
  Report Type: Spontaneous
  Country: GB (occurrence: GB)
  Receive Date: 20251205
  Receipt Date: 20251205
  Transmission Date: 20260117
  Serious: Yes (Other)
  Sender: ACCORD
  Company Number: None

PATIENT
  Age: 23 Year

DRUGS (16)
  1. MONTELUKAST [Suspect]
     Active Substance: MONTELUKAST
     Indication: Product used for unknown indication
     Dosage: AT NIGHT
  2. QUETIAPINE [Concomitant]
     Active Substance: QUETIAPINE
  3. DOCUSATE [Concomitant]
     Active Substance: DOCUSATE
  4. LAMOTRIGINE [Concomitant]
     Active Substance: LAMOTRIGINE
  5. BECLOMETHASONE DIPROPIONATE\FORMOTEROL FUMARATE\GLYCOPYRROLATE [Concomitant]
     Active Substance: BECLOMETHASONE DIPROPIONATE\FORMOTEROL FUMARATE\GLYCOPYRROLATE
  6. Nicorette?QuickMist [Concomitant]
  7. FEXOFENADINE [Concomitant]
     Active Substance: FEXOFENADINE HYDROCHLORIDE
  8. FOLIC ACID [Concomitant]
     Active Substance: FOLIC ACID
  9. HUXD3 [Concomitant]
  10. SERTRALINE [Concomitant]
     Active Substance: SERTRALINE HYDROCHLORIDE
  11. ALBUTEROL [Concomitant]
     Active Substance: ALBUTEROL
  12. NICOTINE [Concomitant]
     Active Substance: NICOTINE
  13. CLOBAZAM [Concomitant]
     Active Substance: CLOBAZAM
  14. FLUTICASONE FUROATE [Concomitant]
     Active Substance: FLUTICASONE FUROATE
  15. FERROUS FUMARATE [Concomitant]
     Active Substance: FERROUS FUMARATE
  16. LORAZEPAM [Concomitant]
     Active Substance: LORAZEPAM

REACTIONS (1)
  - Bipolar disorder [Unknown]
